FAERS Safety Report 5160808-4 (Version None)
Quarter: 2006Q4

REPORT INFORMATION
  Report Type: 
  Country: None (occurrence: None)
  Receive Date: 20061121
  Receipt Date: 20061107
  Transmission Date: 20070319
  Serious: Yes (Other)
  Sender: FDA-Public Use
  Company Number: DE-2006-005197

PATIENT
  Age: 49 Year
  Sex: Female

DRUGS (8)
  1. BETAFERON (INTERFERON BETA  - 1B)INJECTION, 250?G [Suspect]
     Dosage: UNK, UNK, SUBCUTANEOUS
     Route: 058
     Dates: start: 19960101
  2. PREDNISOLONE [Concomitant]
  3. MOLSIDOMINE (MOLSIDOMINE) [Concomitant]
  4. CLOPIDOGREL BISULFATE [Concomitant]
  5. ENALAPRIL MALEATE [Concomitant]
  6. METOPROLOL TARTRATE [Concomitant]
  7. PROTHYRID (LEVOTHYROXINE SODIUM, LIOTHYRONINE HYDROCHLORIDE) [Concomitant]
  8. SPASMEX (TROSPIUM CHLORIDE) [Concomitant]

REACTIONS (1)
  - MYOCARDIAL INFARCTION [None]
